FAERS Safety Report 16741934 (Version 3)
Quarter: 2019Q3

REPORT INFORMATION
  Report Type: Report from Study
  Country: US (occurrence: US)
  Receive Date: 20190826
  Receipt Date: 20190920
  Transmission Date: 20191005
  Serious: Yes (Hospitalization, Other)
  Sender: FDA-Public Use
  Company Number: US-MALLINCKRODT-T201905843

PATIENT
  Sex: Female
  Weight: 45 kg

DRUGS (2)
  1. REPOSITORY CORTICOTROPIN INJECTION [Suspect]
     Active Substance: CORTICOTROPIN
     Indication: ARTHRITIS
     Dosage: 0.2 MILLIGRAM, TWICE A WEEK
     Route: 058
     Dates: start: 2017
  2. REPOSITORY CORTICOTROPIN INJECTION [Suspect]
     Active Substance: CORTICOTROPIN
     Indication: ANKYLOSING SPONDYLITIS
     Dosage: 80 UNITS THREE TIMES WEEKLY
     Route: 058

REACTIONS (5)
  - Fall [Recovered/Resolved]
  - Blood potassium increased [Recovered/Resolved]
  - Infection [Unknown]
  - Loss of consciousness [Unknown]
  - Rib fracture [Recovered/Resolved]

NARRATIVE: CASE EVENT DATE: 2019
